FAERS Safety Report 17043401 (Version 1)
Quarter: 2019Q4

REPORT INFORMATION
  Report Type: Spontaneous
  Country: US (occurrence: US)
  Receive Date: 20191017
  Receipt Date: 20191017
  Transmission Date: 20200122
  Serious: No
  Sender: FDA-Public Use
  Company Number: None

PATIENT
  Age: 57 Year
  Sex: Male
  Weight: 68.04 kg

DRUGS (5)
  1. TYLENOL EXTRA STRENGTH [Concomitant]
     Active Substance: ACETAMINOPHEN
  2. RITUXIMAB. [Suspect]
     Active Substance: RITUXIMAB
     Indication: PAIN
     Dosage: ?          QUANTITY:1000 MG MILLIGRAM(S);OTHER FREQUENCY:1ST 14 DAYS,2ND,3R;?
     Dates: start: 20190412, end: 20190426
  3. ALEVE [Concomitant]
     Active Substance: NAPROXEN SODIUM
  4. OXYCODONE-ACETAMINOPHEN [Concomitant]
     Active Substance: ACETAMINOPHEN\OXYCODONE HYDROCHLORIDE
  5. ADVIL [Concomitant]
     Active Substance: IBUPROFEN

REACTIONS (2)
  - Pain [None]
  - Arthralgia [None]

NARRATIVE: CASE EVENT DATE: 20190412
